FAERS Safety Report 6877722-6 (Version None)
Quarter: 2010Q3

REPORT INFORMATION
  Report Type: 
  Country: None (occurrence: None)
  Receive Date: 20100727
  Receipt Date: 20100616
  Transmission Date: 20110219
  Serious: No
  Sender: FDA-Public Use
  Company Number: US-ABBOTT-10P-163-0652932-00

PATIENT
  Age: 87 Year
  Sex: Male
  Weight: 82.628 kg

DRUGS (3)
  1. SYNTHROID [Suspect]
     Indication: HYPOTHYROIDISM
     Dosage: EVERY MORNING
     Route: 048
     Dates: start: 20100501
  2. REMERON [Suspect]
     Indication: DEPRESSION
     Dosage: CUTS TABLET FEW TIMES, HAS 1/8TH OF TAB
     Route: 048
  3. REMERON [Suspect]
     Route: 048

REACTIONS (6)
  - ANXIETY [None]
  - ASTHENIA [None]
  - FATIGUE [None]
  - INSOMNIA [None]
  - MUSCLE SPASMS [None]
  - MUSCULAR WEAKNESS [None]
